FAERS Safety Report 23024074 (Version 1)
Quarter: 2023Q4

REPORT INFORMATION
  Report Type: Report from Study
  Country: US (occurrence: US)
  Receive Date: 20231004
  Receipt Date: 20231004
  Transmission Date: 20240109
  Serious: Yes (Hospitalization, Disabling)
  Sender: FDA-Public Use
  Company Number: US-ABBVIE-5432577

PATIENT
  Age: 47 Year
  Sex: Female
  Weight: 52.163 kg

DRUGS (1)
  1. CREON [Suspect]
     Active Substance: PANCRELIPASE AMYLASE\PANCRELIPASE LIPASE\PANCRELIPASE PROTEASE
     Indication: Pancreatic failure
     Dosage: TIME INTERVAL: 0.33333333 DAYS: FORM STRENGTH: 36000 UNIT
     Route: 048
     Dates: end: 202302

REACTIONS (5)
  - Gait inability [Recovered/Resolved]
  - Red blood cell count abnormal [Recovering/Resolving]
  - Hypoaesthesia [Recovering/Resolving]
  - Urinary tract infection [Recovered/Resolved]
  - Haemoglobin abnormal [Unknown]

NARRATIVE: CASE EVENT DATE: 20230501
